FAERS Safety Report 20301844 (Version 2)
Quarter: 2022Q1

REPORT INFORMATION
  Report Type: Spontaneous
  Country: US (occurrence: US)
  Receive Date: 20220105
  Receipt Date: 20220219
  Transmission Date: 20220424
  Serious: No
  Sender: FDA-Public Use
  Company Number: US-JNJFOC-20211232864

PATIENT
  Age: 57 Year
  Sex: Female
  Weight: 76.2 kg

DRUGS (8)
  1. TREMFYA [Suspect]
     Active Substance: GUSELKUMAB
     Indication: Psoriatic arthropathy
     Route: 065
     Dates: start: 2019
  2. TREMFYA [Suspect]
     Active Substance: GUSELKUMAB
     Indication: Psoriasis
  3. SYNTHROID [Concomitant]
     Active Substance: LEVOTHYROXINE SODIUM
     Indication: Hypothyroidism
     Dosage: 112 MCG
  4. PREDNISONE [Concomitant]
     Active Substance: PREDNISONE
     Dosage: TAKEN AS NEEDED
  5. TRAMADOL [Concomitant]
     Active Substance: TRAMADOL
     Dosage: TAKEN AS NEEDED
  6. MAXALT [Concomitant]
     Active Substance: RIZATRIPTAN BENZOATE
     Dosage: TAKE AS NEEDED
  7. NAPROXEN [Concomitant]
     Active Substance: NAPROXEN
     Dosage: TAKE AS NEEDED
  8. METHOCARBAMOL [Concomitant]
     Active Substance: METHOCARBAMOL
     Dosage: TAKE AS NEEDED

REACTIONS (2)
  - Device issue [Unknown]
  - Product dose omission issue [Unknown]

NARRATIVE: CASE EVENT DATE: 20211214
